FAERS Safety Report 8792433 (Version 1)
Quarter: 2012Q4

REPORT INFORMATION
  Report Type: 
  Country: US (occurrence: US)
  Receive Date: 20120918
  Receipt Date: 20120918
  Transmission Date: 20130627
  Serious: No
  Sender: FDA-Public Use
  Company Number: US-PFIZER INC-2012228386

PATIENT
  Age: 62 Year
  Sex: Female
  Weight: 73.47 kg

DRUGS (2)
  1. ADVIL PM [Suspect]
     Indication: SLEEP DISORDER
     Dosage: 400 mg, 2 capsule daily at night
     Route: 048
     Dates: start: 20120902, end: 20120905
  2. ADVIL PM [Suspect]
     Indication: HEADACHE

REACTIONS (1)
  - Drug ineffective [Unknown]
